FAERS Safety Report 4821713-3 (Version None)
Quarter: 2005Q4

REPORT INFORMATION
  Report Type: 
  Country: None (occurrence: None)
  Receive Date: 20051107
  Receipt Date: 20051019
  Transmission Date: 20060501
  Serious: Yes (Other)
  Sender: FDA-Public Use
  Company Number: PHEH2005US11700

PATIENT
  Age: 46 Year
  Sex: Female
  Weight: 61 kg

DRUGS (2)
  1. GLEEVEC [Suspect]
     Indication: CHRONIC MYELOID LEUKAEMIA
     Dosage: 400 MG, QD
     Route: 048
  2. GLEEVEC [Suspect]
     Dosage: 300 MG, QD
     Route: 048

REACTIONS (2)
  - CHEST PAIN [None]
  - PALPITATIONS [None]
